FAERS Safety Report 5731762-9 (Version None)
Quarter: 2008Q2

REPORT INFORMATION
  Report Type: 
  Country: None (occurrence: None)
  Receive Date: 20080506
  Receipt Date: 20080422
  Transmission Date: 20081010
  Serious: Yes (Hospitalization, Disabling)
  Sender: FDA-Public Use
  Company Number: 02100-EUR-08-0005

PATIENT
  Age: 71 Year
  Sex: Female

DRUGS (8)
  1. PLETAL [Suspect]
     Indication: PERIPHERAL ARTERIAL OCCLUSIVE DISEASE
     Dosage: 100 MG, BID ORAL
     Route: 048
     Dates: start: 20070604, end: 20071130
  2. CLOPIDOGREL BISULFATE [Concomitant]
  3. EZETIMIBE [Concomitant]
  4. SIMVASTATIN [Concomitant]
  5. FELODIPINE [Concomitant]
  6. CANDESARTAN CILEXETIL (CANDESARTAN CILEXETIL) [Concomitant]
  7. CALCIUM D3 (CALCIUM, COLECALCIFEROL) [Concomitant]
  8. ALENDRONIC ACID [Concomitant]

REACTIONS (4)
  - DYSPNOEA EXERTIONAL [None]
  - INTERSTITIAL LUNG DISEASE [None]
  - PULMONARY FIBROSIS [None]
  - RASH PRURITIC [None]
